FAERS Safety Report 8259338-2 (Version None)
Quarter: 2012Q2

REPORT INFORMATION
  Report Type: 
  Country: None (occurrence: None)
  Receive Date: 20120404
  Receipt Date: 20120323
  Transmission Date: 20120825
  Serious: Yes (Hospitalization)
  Sender: FDA-Public Use
  Company Number: GB-ALEXION PHARMACEUTICALS INC.-A201200344

PATIENT
  Sex: Male

DRUGS (6)
  1. SOLIRIS [Suspect]
     Indication: PAROXYSMAL NOCTURNAL HAEMOGLOBINURIA
     Dosage: INITIATION PHASE
     Route: 042
     Dates: start: 20081101
  2. SOLIRIS [Suspect]
     Dosage: 1200 MG, Q2W
     Route: 042
  3. SOLIRIS [Suspect]
     Dosage: 900 MG, Q2W
     Route: 042
  4. CYCLOSPORINE [Concomitant]
     Indication: TUBERCULOSIS
     Dosage: UNK
     Route: 048
  5. RIFAMPICIN [Concomitant]
     Indication: TUBERCULOSIS
     Dosage: UNK
     Route: 048
  6. TINZAPARIN [Concomitant]
     Indication: THROMBOSIS
     Dosage: UNK
     Route: 058

REACTIONS (4)
  - DRUG LEVEL DECREASED [None]
  - INCORRECT DOSE ADMINISTERED [None]
  - HEPATIC VEIN THROMBOSIS [None]
  - SPLENIC VEIN THROMBOSIS [None]
